FAERS Safety Report 14387800 (Version 2)
Quarter: 2018Q3

REPORT INFORMATION
  Report Type: Spontaneous
  Country: US (occurrence: US)
  Receive Date: 20180115
  Receipt Date: 20180716
  Transmission Date: 20181010
  Serious: Yes (Other)
  Sender: FDA-Public Use
  Company Number: US-SA-2017SA190545

PATIENT
  Sex: Female

DRUGS (10)
  1. DEXAMETHASONE. [Concomitant]
     Active Substance: DEXAMETHASONE
  2. TAXOTERE [Suspect]
     Active Substance: DOCETAXEL
     Indication: BREAST CANCER
     Dosage: UNK UNK,QCY
     Route: 051
     Dates: start: 20120820, end: 20120820
  3. HERCEPTIN [Concomitant]
     Active Substance: TRASTUZUMAB
  4. BENADRYL [Concomitant]
     Active Substance: DIPHENHYDRAMINE HYDROCHLORIDE
  5. APREPITANT. [Concomitant]
     Active Substance: APREPITANT
  6. CARBOPLATIN. [Concomitant]
     Active Substance: CARBOPLATIN
  7. ALOXI [Concomitant]
     Active Substance: PALONOSETRON HYDROCHLORIDE
  8. TAXOTERE [Suspect]
     Active Substance: DOCETAXEL
     Dosage: UNK UNK,QCY
     Route: 051
     Dates: start: 20121203, end: 20121203
  9. ZANTAC [Concomitant]
     Active Substance: RANITIDINE HYDROCHLORIDE
  10. CORTISONE [Concomitant]
     Active Substance: CORTISONE\HYDROCORTISONE

REACTIONS (5)
  - Impaired quality of life [Unknown]
  - Pain [Unknown]
  - Alopecia [Not Recovered/Not Resolved]
  - Anxiety [Unknown]
  - Emotional distress [Unknown]
